FAERS Safety Report 4726460-4 (Version None)
Quarter: 2005Q3

REPORT INFORMATION
  Report Type: 
  Country: None (occurrence: None)
  Receive Date: 20050725
  Receipt Date: 20050511
  Transmission Date: 20060218
  Serious: No
  Sender: FDA-Public Use
  Company Number: USA050597765

PATIENT
  Age: 39 Year
  Sex: Female
  Weight: 134 kg

DRUGS (6)
  1. STRATTERA [Suspect]
     Indication: ATTENTION DEFICIT/HYPERACTIVITY DISORDER
     Dosage: 80 MG DAY
     Dates: start: 20031217, end: 20050303
  2. PAXIL [Concomitant]
  3. ALBUTEROL [Concomitant]
  4. PLENDIL [Concomitant]
  5. ACETAMINOPHEN W/HYDROCODONE [Concomitant]
  6. TRAZADONE [Concomitant]

REACTIONS (5)
  - DEHYDRATION [None]
  - KETONURIA [None]
  - MALNUTRITION [None]
  - NAUSEA [None]
  - VOMITING [None]
